FAERS Safety Report 6502074-0 (Version None)
Quarter: 2009Q4

REPORT INFORMATION
  Report Type: 
  Country: None (occurrence: None)
  Receive Date: 20091214
  Receipt Date: 20091202
  Transmission Date: 20100525
  Serious: Yes (Other)
  Sender: FDA-Public Use
  Company Number: 2009AL007648

PATIENT
  Age: 24 Year
  Sex: Male

DRUGS (2)
  1. CITALOPRAM HYDROBROMIDE [Suspect]
     Indication: DEPRESSED MOOD
     Dosage: 40 MG;QD;PO
     Route: 048
  2. CLOZARIL [Concomitant]

REACTIONS (2)
  - FALL [None]
  - VITREOUS FLOATERS [None]
